FAERS Safety Report 7003889-5 (Version None)
Quarter: 2010Q3

REPORT INFORMATION
  Report Type: 
  Country: None (occurrence: None)
  Receive Date: 20100917
  Receipt Date: 20100904
  Transmission Date: 20110219
  Serious: Yes (Other)
  Sender: FDA-Public Use
  Company Number: 2010AP001906

PATIENT
  Age: 87 Year
  Sex: Male

DRUGS (3)
  1. SERTRALINE HYDROCHLORIDE [Suspect]
     Indication: POST-TRAUMATIC STRESS DISORDER
  2. BUPROPIO [Concomitant]
  3. LORAZEPAM [Concomitant]

REACTIONS (5)
  - ABNORMAL SLEEP-RELATED EVENT [None]
  - ACCIDENTAL EXPOSURE [None]
  - CONTUSION [None]
  - LACERATION [None]
  - NIGHTMARE [None]
